FAERS Safety Report 8393162-5 (Version None)
Quarter: 2012Q2

REPORT INFORMATION
  Report Type: 
  Country: None (occurrence: None)
  Receive Date: 20120529
  Receipt Date: 20120507
  Transmission Date: 20120825
  Serious: No
  Sender: FDA-Public Use
  Company Number: US-ABBOTT-12P-163-0933723-00

PATIENT
  Sex: Male

DRUGS (7)
  1. ANDROGEL [Suspect]
     Indication: BLOOD TESTOSTERONE DECREASED
     Dosage: 2 PUMPS
     Route: 061
     Dates: start: 20120401
  2. MULTI-VITAMIN [Concomitant]
     Indication: VITAMIN SUPPLEMENTATION
  3. GARLIC [Concomitant]
     Indication: PHYTOTHERAPY
  4. FISH OIL [Concomitant]
     Indication: MEDICAL DIET
  5. GINSENG [Concomitant]
     Indication: PHYTOTHERAPY
  6. OSTEO BI-FLEX [Concomitant]
     Indication: MEDICAL DIET
  7. VITAMIN C [Concomitant]
     Indication: VITAMIN SUPPLEMENTATION

REACTIONS (5)
  - MUSCLE FATIGUE [None]
  - INCORRECT ROUTE OF DRUG ADMINISTRATION [None]
  - DRUG PRESCRIBING ERROR [None]
  - FATIGUE [None]
  - ACTIVITIES OF DAILY LIVING IMPAIRED [None]
